FAERS Safety Report 11242687 (Version 5)
Quarter: 2018Q3

REPORT INFORMATION
  Report Type: Report from Study
  Country: US (occurrence: US)
  Receive Date: 20150707
  Receipt Date: 20180808
  Transmission Date: 20181010
  Serious: Yes (Congenital Anomaly, Other)
  Sender: FDA-Public Use
  Company Number: PHHO2015US011140

PATIENT
  Sex: Male

DRUGS (3)
  1. ZANAFLEX [Suspect]
     Active Substance: TIZANIDINE HYDROCHLORIDE
     Indication: MULTIPLE SCLEROSIS
     Dosage: 4 MG, BID
     Route: 065
     Dates: start: 20141014, end: 20141108
  2. RITALIN [Suspect]
     Active Substance: METHYLPHENIDATE HYDROCHLORIDE
     Indication: FATIGUE
     Dosage: 10 MG, QD
     Route: 048
     Dates: start: 20141014, end: 20141108
  3. GILENYA [Suspect]
     Active Substance: FINGOLIMOD HYDROCHLORIDE
     Indication: RELAPSING-REMITTING MULTIPLE SCLEROSIS
     Route: 064

REACTIONS (3)
  - Cardiac arrest [Unknown]
  - Foetal exposure during pregnancy [Unknown]
  - Multiple cardiac defects [Unknown]
